FAERS Safety Report 5021509-6 (Version None)
Quarter: 2006Q2

REPORT INFORMATION
  Report Type: 
  Country: None (occurrence: None)
  Receive Date: 20060605
  Receipt Date: 20060525
  Transmission Date: 20061013
  Serious: Yes (Other)
  Sender: FDA-Public Use
  Company Number: 200612247BCC

PATIENT
  Age: 49 Year
  Sex: Female
  Weight: 104.3273 kg

DRUGS (2)
  1. LOW DOSE 81MG BAYER ENTERIC (ACETYLSALICYLIC ACID) [Suspect]
     Dosage: QD, ORAL
     Route: 048
     Dates: end: 20040101
  2. ONE-A-DAY ESSENTIAL [Suspect]
     Dosage: QD, ORAL
     Route: 048
     Dates: start: 19740101, end: 20040101

REACTIONS (2)
  - CEREBROVASCULAR ACCIDENT [None]
  - DIABETES MELLITUS [None]
